FAERS Safety Report 25562748 (Version 1)
Quarter: 2025Q3

REPORT INFORMATION
  Report Type: Spontaneous
  Country: US (occurrence: US)
  Receive Date: 20250716
  Receipt Date: 20250716
  Transmission Date: 20251020
  Serious: No
  Sender: NOVO NORDISK
  Company Number: US-NOVOPROD-1285770

PATIENT
  Age: 66 Year

DRUGS (1)
  1. OZEMPIC [Suspect]
     Active Substance: SEMAGLUTIDE
     Indication: Type 2 diabetes mellitus
     Dosage: 0.25 MG, QW
     Route: 058
     Dates: start: 202405

REACTIONS (5)
  - Back pain [Unknown]
  - Off label use [Unknown]
  - Incorrect dose administered [Unknown]
  - Nausea [Unknown]
  - Device malfunction [Unknown]
